FAERS Safety Report 7724033-2 (Version None)
Quarter: 2011Q3

REPORT INFORMATION
  Report Type: 
  Country: None (occurrence: None)
  Receive Date: 20110901
  Receipt Date: 20110819
  Transmission Date: 20111222
  Serious: No
  Sender: FDA-Public Use
  Company Number: US-BAYER-2011-075962

PATIENT
  Sex: Female

DRUGS (1)
  1. MIRENA [Suspect]
     Dosage: 20 MCG/24HR, CONT
     Route: 015
     Dates: start: 20091201, end: 20101201

REACTIONS (5)
  - ABDOMINAL PAIN [None]
  - INFECTION [None]
  - VAGINAL DISCHARGE [None]
  - MENSTRUATION IRREGULAR [None]
  - AMENORRHOEA [None]
